FAERS Safety Report 5661586-2 (Version None)
Quarter: 2008Q1

REPORT INFORMATION
  Report Type: 
  Country: None (occurrence: None)
  Receive Date: 20080306
  Receipt Date: 20080219
  Transmission Date: 20080703
  Serious: Yes (Disabling)
  Sender: FDA-Public Use
  Company Number: 2008JP000753

PATIENT
  Age: 59 Year
  Sex: Male
  Weight: 56.5 kg

DRUGS (4)
  1. PROGRAF(TACROLIMUS) FORMULATION UNKNOWN [Suspect]
     Indication: RENAL TRANSPLANT
     Dosage: 2.5 MG, BID, ORAL; 3 MG, UNKNOWN/D, ORAL
     Route: 048
     Dates: start: 20051016
  2. CELLCEPT [Suspect]
     Indication: RENAL TRANSPLANT
     Dosage: 500 MG, BID, ORAL
     Route: 048
     Dates: start: 20051016
  3. PREDNISOLONE [Concomitant]
  4. SIMULECT [Concomitant]

REACTIONS (2)
  - MENINGITIS TUBERCULOUS [None]
  - NO THERAPEUTIC RESPONSE [None]
